FAERS Safety Report 8833684 (Version 1)
Quarter: 2012Q4

REPORT INFORMATION
  Report Type: 
  Country: DK (occurrence: DK)
  Receive Date: 20121010
  Receipt Date: 20121010
  Transmission Date: 20130627
  Serious: Yes (Other)
  Sender: FDA-Public Use
  Company Number: DK-NOVOPROD-361576

PATIENT
  Age: 11 Year
  Sex: Male
  Weight: 31 kg

DRUGS (1)
  1. NORDITROPIN FLEXPRO [Suspect]
     Indication: GROWTH RETARDATION
     Dosage: 1.2 mg, qd
     Route: 058
     Dates: start: 20100824, end: 20120905

REACTIONS (1)
  - Osteochondrosis [Not Recovered/Not Resolved]
